FAERS Safety Report 19457969 (Version 1)
Quarter: 2021Q2

REPORT INFORMATION
  Report Type: Spontaneous
  Country: US (occurrence: US)
  Receive Date: 20210624
  Receipt Date: 20210624
  Transmission Date: 20210717
  Serious: No
  Sender: FDA-Public Use
  Company Number: US-PFIZER INC-2021612417

PATIENT
  Age: 29 Year
  Sex: Female
  Weight: 75.75 kg

DRUGS (1)
  1. DEPO?PROVERA [Suspect]
     Active Substance: MEDROXYPROGESTERONE ACETATE
     Dosage: 104 MG, CYCLIC, EVERY 84 DAYS, ROTATING SITES, BETWEEN THIGHS AND STOMACH
     Dates: start: 202012

REACTIONS (3)
  - Device issue [Unknown]
  - Product administration error [Unknown]
  - Drug dose omission by device [Unknown]

NARRATIVE: CASE EVENT DATE: 20210524
